FAERS Safety Report 11118756 (Version 1)
Quarter: 2015Q2

REPORT INFORMATION
  Report Type: Spontaneous
  Country: CH (occurrence: CH)
  Receive Date: 20150518
  Receipt Date: 20150518
  Transmission Date: 20150821
  Serious: Yes (Hospitalization, Other)
  Sender: FDA-Public Use
  Company Number: CH-TEVA-562679ISR

PATIENT
  Age: 69 Year
  Sex: Female
  Weight: 56 kg

DRUGS (4)
  1. OLFEN [Suspect]
     Active Substance: DICLOFENAC SODIUM
     Indication: ARTHRALGIA
     Dosage: 50 MILLIGRAM DAILY; LONG TERM, IN SELF-MEDICATION
     Route: 048
     Dates: end: 20150311
  2. BLOPRESS PLUS TABLETTEN [Interacting]
     Active Substance: CANDESARTAN CILEXETIL\HYDROCHLOROTHIAZIDE
     Indication: ESSENTIAL HYPERTENSION
     Dosage: 1 DOSAGE FORMS DAILY; LONG TERM, 1 DF = 16 MG CANDESARTAN + 12.5 MG HYDROCHLOROTHIAZIDE
     Route: 048
     Dates: end: 20150311
  3. BELOC ZOK 50 MG RETARDTABLETTEN [Interacting]
     Active Substance: METOPROLOL SUCCINATE
     Indication: ESSENTIAL HYPERTENSION
     Dosage: 50 MILLIGRAM DAILY; LONG TERM
     Route: 048
     Dates: end: 20150311
  4. AMLODIPINE [Interacting]
     Active Substance: AMLODIPINE BESYLATE
     Indication: ESSENTIAL HYPERTENSION
     Dosage: 10 MILLIGRAM DAILY; LONG TERM
     Route: 048
     Dates: end: 20150311

REACTIONS (11)
  - Acute kidney injury [Recovering/Resolving]
  - Confusional state [Unknown]
  - Shock haemorrhagic [Recovering/Resolving]
  - Drug interaction [Recovering/Resolving]
  - Oesophagitis [Recovering/Resolving]
  - Gastrointestinal disorder [Unknown]
  - Haemodynamic instability [Recovering/Resolving]
  - Melaena [Recovering/Resolving]
  - Duodenal ulcer [Recovering/Resolving]
  - Haemorrhagic erosive gastritis [Recovering/Resolving]
  - Haemorrhagic anaemia [Recovering/Resolving]

NARRATIVE: CASE EVENT DATE: 20150311
